FAERS Safety Report 5815985-6 (Version None)
Quarter: 2008Q3

REPORT INFORMATION
  Report Type: 
  Country: None (occurrence: None)
  Receive Date: 20080721
  Receipt Date: 20080711
  Transmission Date: 20090109
  Serious: Yes (Other)
  Sender: FDA-Public Use
  Company Number: PHHY2008FR13723

PATIENT
  Sex: Female

DRUGS (2)
  1. EXELON [Suspect]
     Indication: PARKINSON'S DISEASE
     Dosage: 1.5 MG, BID
  2. EXELON [Suspect]
     Indication: DEMENTIA

REACTIONS (2)
  - EJECTION FRACTION DECREASED [None]
  - MITRAL VALVE INCOMPETENCE [None]
